FAERS Safety Report 6858210-X (Version None)
Quarter: 2010Q3

REPORT INFORMATION
  Report Type: 
  Country: None (occurrence: None)
  Receive Date: 20100719
  Receipt Date: 20100709
  Transmission Date: 20110219
  Serious: Yes (Life-Threatening, Hospitalization)
  Sender: FDA-Public Use
  Company Number: BR-GILEAD-2010-0029932

PATIENT
  Sex: Female
  Weight: 86 kg

DRUGS (7)
  1. TENOFOVIR DISOPROXIL FUMARATE [Suspect]
     Indication: HIV INFECTION
     Route: 048
     Dates: start: 20100518
  2. LAMIVUDINE (EPIVIR HBV) [Suspect]
     Indication: HIV INFECTION
     Dates: start: 20100518
  3. ATAZANAVIR SULFATE [Suspect]
     Indication: HIV INFECTION
     Dates: start: 20100518
  4. RITONAVIR [Concomitant]
     Indication: HIV INFECTION
  5. CAPTOPRIL [Concomitant]
     Indication: HYPERTENSION
  6. FLUOXETINE HCL [Concomitant]
     Indication: DEPRESSION
  7. METFORMIN HCL [Concomitant]
     Indication: DIABETES MELLITUS

REACTIONS (2)
  - COUGH [None]
  - HAEMOLYTIC ANAEMIA [None]
